FAERS Safety Report 14203533 (Version 1)
Quarter: 2017Q4

REPORT INFORMATION
  Report Type: Report from Study
  Country: US (occurrence: US)
  Receive Date: 20171120
  Receipt Date: 20171120
  Transmission Date: 20180321
  Serious: Yes (Hospitalization, Other)
  Sender: FDA-Public Use
  Company Number: US-ROCHE-2026518

PATIENT
  Age: 56 Year
  Sex: Male
  Weight: 77.18 kg

DRUGS (1)
  1. COTELLIC [Suspect]
     Active Substance: COBIMETINIB
     Indication: MALIGNANT MELANOMA
     Dosage: 21 DAYS ON AND A WEEK OFF; TOTAL OF 60MG
     Route: 048
     Dates: start: 20170819, end: 20171028

REACTIONS (5)
  - Brain operation [Recovered/Resolved]
  - Brain neoplasm [Recovered/Resolved]
  - Neoplasm progression [Not Recovered/Not Resolved]
  - Neoplasm [Not Recovered/Not Resolved]
  - Seizure [Recovered/Resolved]

NARRATIVE: CASE EVENT DATE: 20170927
